FAERS Safety Report 9002295 (Version 1)
Quarter: 2013Q1

REPORT INFORMATION
  Report Type: Spontaneous
  Country: US (occurrence: US)
  Receive Date: 20130107
  Receipt Date: 20130107
  Transmission Date: 20140127
  Serious: No
  Sender: FDA-Public Use
  Company Number: US-PFIZER INC-2013001333

PATIENT
  Age: 62 Year
  Sex: Male

DRUGS (2)
  1. REVATIO [Suspect]
     Dosage: UNK
  2. AMBRISENTAN [Suspect]
     Indication: PULMONARY ARTERIAL HYPERTENSION
     Dosage: 10 MG, 1X/DAY
     Route: 048
     Dates: start: 20110623

REACTIONS (1)
  - Fatigue [Unknown]
